FAERS Safety Report 18500659 (Version 1)
Quarter: 2020Q4

REPORT INFORMATION
  Report Type: Spontaneous
  Country: US (occurrence: US)
  Receive Date: 20201112
  Receipt Date: 20201112
  Transmission Date: 20210114
  Serious: No
  Sender: FDA-Public Use
  Company Number: None

PATIENT
  Age: 79 Year
  Sex: Male
  Weight: 128.7 kg

DRUGS (12)
  1. ELIQUIS [Concomitant]
     Active Substance: APIXABAN
  2. CUBICIN RF [Suspect]
     Active Substance: DAPTOMYCIN
     Indication: OSTEOMYELITIS
     Route: 041
     Dates: start: 20201103, end: 20201109
  3. ATORVASTATIN 20MG [Concomitant]
     Active Substance: ATORVASTATIN
  4. DILTIAZEM 240MG [Concomitant]
  5. COREG 6.25MG [Concomitant]
  6. IPRATROPIUM NEBULIZATION [Concomitant]
  7. SERTRALINE 50MG [Concomitant]
     Active Substance: SERTRALINE HYDROCHLORIDE
  8. SYMBICORT 160MCG/4.5 MCG/INH [Concomitant]
  9. CEFEPIME 2GM IV [Concomitant]
  10. GUAIFENESIN 600MG [Concomitant]
  11. ISOSORBIDE MONONITRATE. [Concomitant]
     Active Substance: ISOSORBIDE MONONITRATE
  12. OXYCODONE-ACETAMINOPHEN [Concomitant]
     Active Substance: ACETAMINOPHEN\OXYCODONE HYDROCHLORIDE

REACTIONS (2)
  - Hepatitis [None]
  - Rhabdomyolysis [None]

NARRATIVE: CASE EVENT DATE: 20201111
